FAERS Safety Report 21926799 (Version 2)
Quarter: 2023Q1

REPORT INFORMATION
  Report Type: Spontaneous
  Country: US (occurrence: US)
  Receive Date: 20230130
  Receipt Date: 20230213
  Transmission Date: 20230418
  Serious: Yes (Life-Threatening, Hospitalization)
  Sender: FDA-Public Use
  Company Number: US-TEVA-2023-US-2850284

PATIENT
  Age: 30 Year
  Sex: Female

DRUGS (6)
  1. GUANFACINE [Suspect]
     Active Substance: GUANFACINE
     Indication: Suicide attempt
     Route: 048
  2. HYDROXYZINE [Suspect]
     Active Substance: HYDROXYZINE HYDROCHLORIDE
     Indication: Suicide attempt
     Route: 048
  3. LAMOTRIGINE [Suspect]
     Active Substance: LAMOTRIGINE
     Indication: Suicide attempt
     Route: 048
  4. PROPRANOLOL [Suspect]
     Active Substance: PROPRANOLOL HYDROCHLORIDE
     Indication: Suicide attempt
     Route: 048
  5. SERTRALINE [Suspect]
     Active Substance: SERTRALINE HYDROCHLORIDE
     Indication: Suicide attempt
     Route: 048
  6. ZIPRASIDONE [Suspect]
     Active Substance: ZIPRASIDONE
     Indication: Suicide attempt
     Route: 048

REACTIONS (4)
  - Distributive shock [Recovered/Resolved]
  - Coma [Recovered/Resolved]
  - Poisoning deliberate [Unknown]
  - Intentional overdose [Unknown]
